FAERS Safety Report 10952003 (Version 1)
Quarter: 2015Q1

REPORT INFORMATION
  Report Type: Spontaneous
  Country: US (occurrence: US)
  Receive Date: 20150325
  Receipt Date: 20150325
  Transmission Date: 20150721
  Serious: No
  Sender: FDA-Public Use
  Company Number: US-009507513-1503USA011817

PATIENT
  Sex: Female

DRUGS (3)
  1. SOLARCAINE COOL ALOE [Suspect]
     Active Substance: LIDOCAINE HYDROCHLORIDE
     Route: 061
  2. NEXPLANON [Suspect]
     Active Substance: ETONOGESTREL
     Indication: CONTRACEPTION
     Dosage: ONE ROD/THREE YEARS
     Route: 059
  3. EPINEPHRINE. [Suspect]
     Active Substance: EPINEPHRINE

REACTIONS (3)
  - Implant site necrosis [Unknown]
  - Implant site infection [Unknown]
  - Medication error [Unknown]
